FAERS Safety Report 14487284 (Version 1)
Quarter: 2018Q1

REPORT INFORMATION
  Report Type: Spontaneous
  Country: US (occurrence: US)
  Receive Date: 20180204
  Receipt Date: 20180204
  Transmission Date: 20180509
  Serious: Yes (Life-Threatening)
  Sender: FDA-Public Use
  Company Number: None

PATIENT
  Age: 47 Year
  Sex: Female
  Weight: 81 kg

DRUGS (1)
  1. HUMALOG [Suspect]
     Active Substance: INSULIN LISPRO
     Indication: DIABETES MELLITUS
     Dosage: OTHER STRENGTH:100UNITS/ML;QUANTITY:.5 SLIDING SCALE;OTHER FREQUENCY:EVERY 5 MINUTES;
     Route: 058
     Dates: start: 20180117

REACTIONS (4)
  - Product quality issue [None]
  - Blood glucose increased [None]
  - Extra dose administered [None]
  - Wrong strength [None]

NARRATIVE: CASE EVENT DATE: 20180117
